FAERS Safety Report 5400687-0 (Version None)
Quarter: 2007Q3

REPORT INFORMATION
  Report Type: 
  Country: None (occurrence: None)
  Receive Date: 20070730
  Receipt Date: 20070717
  Transmission Date: 20080115
  Serious: Yes (Hospitalization)
  Sender: FDA-Public Use
  Company Number: ES-ELI_LILLY_AND_COMPANY-ES200707005308

PATIENT
  Age: 82 Year
  Sex: Female

DRUGS (11)
  1. FORTEO [Suspect]
     Indication: OSTEOPOROSIS
     Dosage: 20 UG, UNKNOWN
     Route: 058
     Dates: start: 20060201, end: 20060701
  2. CAPTOPRIL [Concomitant]
     Indication: HYPERTENSION
     Dosage: UNK, UNKNOWN
     Route: 065
  3. LOVASTATIN [Concomitant]
     Indication: DYSLIPIDAEMIA
     Dosage: UNK, UNKNOWN
     Route: 065
  4. SINTROM [Concomitant]
     Indication: PULMONARY EMBOLISM
     Dosage: UNK, UNKNOWN
     Route: 065
     Dates: start: 20060201
  5. NEO TOMIZOL [Concomitant]
     Indication: HYPERTHYROIDISM
     Dosage: UNK, UNKNOWN
     Route: 065
     Dates: start: 20060201
  6. HIPPURAN I 131 [Concomitant]
     Indication: HYPERTHYROIDISM
     Dosage: UNK, UNKNOWN
     Route: 065
  7. CALCIUM D [Concomitant]
     Dosage: UNK, UNKNOWN
     Route: 065
     Dates: start: 20060201
  8. PARACETAMOL W/TRAMADOL [Concomitant]
     Dosage: UNK, UNKNOWN
     Route: 065
     Dates: start: 20060201
  9. DURAGESIC-100 [Concomitant]
     Dosage: UNK, UNKNOWN
     Route: 065
  10. ORFIDAL [Concomitant]
     Dosage: UNK, UNKNOWN
     Route: 065
  11. VENTOLIN                                /SCH/ [Concomitant]
     Dosage: UNK, UNKNOWN
     Route: 065

REACTIONS (1)
  - PANNICULITIS LOBULAR [None]
